FAERS Safety Report 23648507 (Version 1)
Quarter: 2024Q1

REPORT INFORMATION
  Report Type: Spontaneous
  Country: EC (occurrence: EC)
  Receive Date: 20240319
  Receipt Date: 20240319
  Transmission Date: 20240410
  Serious: Yes (Death)
  Sender: FDA-Public Use
  Company Number: EC-PFIZER INC-PV202400036601

PATIENT

DRUGS (1)
  1. SUTENT [Suspect]
     Active Substance: SUNITINIB MALATE
     Indication: Renal neoplasm
     Dosage: 1 DF, DAILY DURING 28 DAYS
     Dates: start: 20240202, end: 20240312

REACTIONS (1)
  - Death [Fatal]
